FAERS Safety Report 17942786 (Version 5)
Quarter: 2020Q3

REPORT INFORMATION
  Report Type: Spontaneous
  Country: IE (occurrence: IE)
  Receive Date: 20200625
  Receipt Date: 20200811
  Transmission Date: 20201103
  Serious: Yes (Other)
  Sender: FDA-Public Use
  Company Number: NVSC2020IE113420

PATIENT
  Age: 27 Year
  Sex: Male

DRUGS (14)
  1. VENLAFAXINE [Suspect]
     Active Substance: VENLAFAXINE HYDROCHLORIDE
     Indication: DEPRESSION
     Dosage: UNK (AT MAXIMUM THERAPEUTICOR AT CLOSE MAXIMUM THERAPEUTIC DOSAGE)
     Route: 065
  2. ESCITALOPRAM [Concomitant]
     Active Substance: ESCITALOPRAM OXALATE
     Indication: ANXIETY
  3. AGOMELATINE [Suspect]
     Active Substance: AGOMELATINE
     Indication: DEPRESSION
     Dosage: UNK (AT MAXIMUM THERAPEUTICOR AT CLOSE MAXIMUM THERAPEUTIC DOSAGE)
     Route: 065
  4. QUETIAPINE. [Concomitant]
     Active Substance: QUETIAPINE
     Indication: ANXIETY
     Dosage: 300 MILLIGRAM, NOCTE
     Route: 065
  5. OLANZAPINE. [Suspect]
     Active Substance: OLANZAPINE
     Indication: ANXIETY
     Dosage: AT LOW?TO?MEDIUM DOSAGES
     Route: 065
  6. PREGABALIN. [Suspect]
     Active Substance: PREGABALIN
     Dosage: 25 MG, BID
     Route: 065
  7. ESCITALOPRAM [Concomitant]
     Active Substance: ESCITALOPRAM OXALATE
     Indication: INSOMNIA
     Dosage: 20 MILLIGRAM, MANE
     Route: 065
  8. PREGABALIN. [Suspect]
     Active Substance: PREGABALIN
     Dosage: 200 MG, QD
     Route: 065
  9. PREGABALIN. [Suspect]
     Active Substance: PREGABALIN
     Indication: ANXIETY
     Dosage: 50 MG, BID(1 WEEK AFTER COMMENCEMENT OF THE 100MG BD DOSAGE)
     Route: 065
  10. PREGABALIN. [Suspect]
     Active Substance: PREGABALIN
     Dosage: 100 MG, BID, (INCREASED AFTER 10 DAYS)
     Route: 065
  11. CLONAZEPAM. [Suspect]
     Active Substance: CLONAZEPAM
     Indication: ANXIETY
     Dosage: AT LOW?TO?MEDIUM DOSAGES
     Route: 065
  12. QUETIAPINE. [Concomitant]
     Active Substance: QUETIAPINE
     Indication: INSOMNIA
  13. MIRTAZAPINE. [Suspect]
     Active Substance: MIRTAZAPINE
     Indication: DEPRESSION
     Dosage: UNK (AT MAXIMUM THERAPEUTICOR AT CLOSE MAXIMUM THERAPEUTIC DOSAGE)
     Route: 048
  14. SERTRALINE [Suspect]
     Active Substance: SERTRALINE HYDROCHLORIDE
     Indication: DEPRESSION
     Dosage: UNK (AT MAXIMUM THERAPEUTICOR AT CLOSE MAXIMUM THERAPEUTIC DOSAGE)
     Route: 065

REACTIONS (5)
  - Libido increased [Recovered/Resolved]
  - Sexual activity increased [Recovered/Resolved]
  - Drug ineffective [Unknown]
  - Sexually inappropriate behaviour [Recovered/Resolved]
  - Disinhibition [Recovered/Resolved]
